FAERS Safety Report 7180236-X (Version None)
Quarter: 2010Q4

REPORT INFORMATION
  Report Type: 
  Country: None (occurrence: None)
  Receive Date: 20101221
  Receipt Date: 20101210
  Transmission Date: 20110411
  Serious: Yes (Hospitalization)
  Sender: FDA-Public Use
  Company Number: PHHO2010US18823

PATIENT
  Sex: Female

DRUGS (2)
  1. AFINITOR [Suspect]
     Indication: METASTASES TO CENTRAL NERVOUS SYSTEM
     Dosage: 5 MG DAILY
     Route: 048
     Dates: start: 20101003, end: 20101017
  2. RADIATION THERAPY [Concomitant]
     Indication: METASTASES TO CENTRAL NERVOUS SYSTEM

REACTIONS (3)
  - HEADACHE [None]
  - HYPOAESTHESIA [None]
  - METASTASES TO CENTRAL NERVOUS SYSTEM [None]
